FAERS Safety Report 17741010 (Version 1)
Quarter: 2020Q2

REPORT INFORMATION
  Report Type: Spontaneous
  Country: FR (occurrence: FR)
  Receive Date: 20200504
  Receipt Date: 20200504
  Transmission Date: 20200714
  Serious: Yes (Other)
  Sender: FDA-Public Use
  Company Number: FR-MYLANLABS-2020M1036315

PATIENT
  Age: 19 Year
  Sex: Male
  Weight: 58 kg

DRUGS (7)
  1. METHOTREXATE MYLAN [Suspect]
     Active Substance: METHOTREXATE SODIUM
     Dosage: UNK
     Route: 065
  2. METHOTREXATE MYLAN [Suspect]
     Active Substance: METHOTREXATE SODIUM
     Dosage: 5.40, QD
     Route: 042
     Dates: start: 20200220, end: 20200223
  3. METHOTREXATE MYLAN [Suspect]
     Active Substance: METHOTREXATE SODIUM
     Dosage: 5.40, QD
     Route: 042
     Dates: start: 20191228, end: 20191230
  4. METHOTREXATE MYLAN [Suspect]
     Active Substance: METHOTREXATE SODIUM
     Dosage: 5.40, QD
     Route: 042
     Dates: start: 20200311, end: 20200315
  5. METHOTREXATE MYLAN [Suspect]
     Active Substance: METHOTREXATE SODIUM
     Dosage: 5.40, QD
     Route: 042
     Dates: start: 20200401, end: 20200405
  6. METHOTREXATE MYLAN [Suspect]
     Active Substance: METHOTREXATE SODIUM
     Indication: EAGLE BARRETT SYNDROME
     Dosage: 5.40, QD
     Route: 042
     Dates: start: 20200116, end: 20200120
  7. METHOTREXATE MYLAN [Suspect]
     Active Substance: METHOTREXATE SODIUM
     Dosage: UNK
     Route: 065

REACTIONS (4)
  - Hypermetabolism [Unknown]
  - Symptom recurrence [Unknown]
  - Drug level decreased [Unknown]
  - Drug ineffective [Unknown]

NARRATIVE: CASE EVENT DATE: 20191228
